FAERS Safety Report 19497547 (Version 1)
Quarter: 2021Q3

REPORT INFORMATION
  Report Type: Spontaneous
  Country: NL (occurrence: NL)
  Receive Date: 20210706
  Receipt Date: 20210706
  Transmission Date: 20211014
  Serious: Yes (Other)
  Sender: FDA-Public Use
  Company Number: NL-TEVA-2021-NL-1930147

PATIENT
  Sex: Male
  Weight: 65 kg

DRUGS (3)
  1. NAPROXEN TABLET 250MG / BRAND NAME NOT SPECIFIED [Suspect]
     Active Substance: NAPROXEN
     Indication: PAIN
     Dosage: 250 MILLIGRAM DAILY;
     Dates: start: 20210602, end: 20210607
  2. LEVOTHYROXINE TABLET 100UG (ZUUR) / THYRAX DUOTAB TABLET 0,100MG [Concomitant]
     Active Substance: LEVOTHYROXINE SODIUM
     Dosage: 125UG,THERAPY START DATE ASKU, THERAPY END DATE ASKU
  3. CETIRIZINE [Concomitant]
     Active Substance: CETIRIZINE HYDROCHLORIDE
     Dosage: THERAPY START DATE ASKU, THERAPY END DATE ASKU, 10 MG

REACTIONS (3)
  - Dermatitis bullous [Recovering/Resolving]
  - Tongue blistering [Recovered/Resolved]
  - Swollen tongue [Recovered/Resolved]
